FAERS Safety Report 6724110-9 (Version None)
Quarter: 2010Q2

REPORT INFORMATION
  Report Type: 
  Country: None (occurrence: None)
  Receive Date: 20100513
  Receipt Date: 20100507
  Transmission Date: 20101027
  Serious: Yes (Hospitalization)
  Sender: FDA-Public Use
  Company Number: BR-ROCHE-701948

PATIENT
  Sex: Female
  Weight: 75 kg

DRUGS (8)
  1. RIVOTRIL [Suspect]
     Indication: INSOMNIA
     Route: 065
  2. RIVOTRIL [Suspect]
     Route: 065
     Dates: end: 20100401
  3. RIVOTRIL [Suspect]
     Dosage: STRENGTH: 2.5 MG/ML
     Route: 048
     Dates: start: 20100401
  4. PANTOPRAZOLE [Suspect]
     Indication: GASTRITIS
     Dosage: CO-INDICATION: ULCER
     Route: 065
     Dates: start: 20080101
  5. ENBREL [Suspect]
     Indication: RHEUMATOID ARTHRITIS
     Route: 065
  6. ENBREL [Suspect]
     Dosage: INTERRUPTED FOR 15 DAYS AND RESTARTED
     Route: 065
  7. CELEBRA [Suspect]
     Indication: RHEUMATOID ARTHRITIS
     Route: 065
  8. PRISTIQ [Concomitant]
     Indication: DEPRESSION
     Dosage: STOP DATE: 2010. 1 TABLET A DAY
     Dates: start: 20100101

REACTIONS (13)
  - ABASIA [None]
  - AMNESIA [None]
  - ARTHRALGIA [None]
  - ARTHROPATHY [None]
  - CONSTIPATION [None]
  - CRYING [None]
  - DRUG INEFFECTIVE [None]
  - GASTRIC DISORDER [None]
  - INSOMNIA [None]
  - MEDICATION ERROR [None]
  - URINARY TRACT INFECTION [None]
  - WEIGHT DECREASED [None]
  - WEIGHT INCREASED [None]
